FAERS Safety Report 6914819-6 (Version None)
Quarter: 2010Q3

REPORT INFORMATION
  Report Type: 
  Country: None (occurrence: None)
  Receive Date: 20100809
  Receipt Date: 20100728
  Transmission Date: 20110219
  Serious: Yes (Other)
  Sender: FDA-Public Use
  Company Number: JP-BRISTOL-MYERS SQUIBB COMPANY-15229156

PATIENT
  Age: 62 Year
  Sex: Female

DRUGS (1)
  1. KENACORT [Suspect]
     Indication: SCLERITIS
     Dosage: 1 DF: 2-4MG
     Route: 057

REACTIONS (2)
  - CONJUNCTIVAL HAEMORRHAGE [None]
  - SCLERAL THINNING [None]
